FAERS Safety Report 17244150 (Version 2)
Quarter: 2020Q1

REPORT INFORMATION
  Report Type: Spontaneous
  Country: PT (occurrence: PT)
  Receive Date: 20200107
  Receipt Date: 20200121
  Transmission Date: 20200409
  Serious: Yes (Life-Threatening, Hospitalization, Other)
  Sender: FDA-Public Use
  Company Number: PT-MYLANLABS-2020M1002019

PATIENT
  Age: 63 Year
  Sex: Female

DRUGS (3)
  1. GLICLAZIDE [Suspect]
     Active Substance: GLICLAZIDE
     Indication: DIABETES MELLITUS
     Dosage: 60 MILLIGRAM, QD
     Route: 048
  2. GLICLAZIDE [Suspect]
     Active Substance: GLICLAZIDE
     Dosage: 80 MILLIGRAM, 12 HOURS
     Route: 048
  3. METFORMIN [Suspect]
     Active Substance: METFORMIN HYDROCHLORIDE
     Indication: DIABETES MELLITUS
     Dosage: 2000 MILLIGRAM, QD
     Route: 048

REACTIONS (8)
  - Psychomotor hyperactivity [Unknown]
  - Haemodynamic instability [Unknown]
  - Diarrhoea [Unknown]
  - Lactic acidosis [Unknown]
  - Acute kidney injury [Unknown]
  - Diabetic ketoacidosis [Unknown]
  - Respiratory failure [Unknown]
  - Vomiting [Unknown]
